FAERS Safety Report 7011204 (Version 1)
Quarter: 2020Q3

REPORT INFORMATION
  Report Type: Report from Study
  Country: US (occurrence: US)
  Receive Date: 20090604
  Receipt Date: 20090604
  Transmission Date: 20201104
  Serious: Yes (Death, Hospitalization, Other)
  Sender: FDA-Public Use
  Company Number: US-ROCHE-636055

PATIENT
  Age: 89 Year
  Sex: Female

DRUGS (1)
  1. IBANDRONIC ACID. [Suspect]
     Active Substance: IBANDRONIC ACID
     Indication: OSTEOPOROSIS
     Route: 048
     Dates: start: 200701, end: 20090103

REACTIONS (4)
  - Cardiac disorder [Unknown]
  - Pneumonia aspiration [Fatal]
  - Hospitalisation [Unknown]
  - Dehydration [Unknown]

NARRATIVE: CASE EVENT DATE: 20070901
